FAERS Safety Report 25042806 (Version 1)
Quarter: 2025Q1

REPORT INFORMATION
  Report Type: Spontaneous
  Country: FR (occurrence: FR)
  Receive Date: 20250305
  Receipt Date: 20250305
  Transmission Date: 20250409
  Serious: Yes (Hospitalization)
  Sender: MYLAN
  Company Number: None

PATIENT
  Age: 45 Year
  Sex: Male

DRUGS (5)
  1. ACETAMINOPHEN [Suspect]
     Active Substance: ACETAMINOPHEN
     Indication: Product used for unknown indication
     Dates: start: 20250129, end: 20250206
  2. KETAMINE [Suspect]
     Active Substance: KETAMINE
     Indication: Product used for unknown indication
  3. KETAMINE [Suspect]
     Active Substance: KETAMINE
     Dates: start: 20250101, end: 20250130
  4. COCAINE [Suspect]
     Active Substance: COCAINE
     Indication: Product used for unknown indication
  5. ALCOHOL [Suspect]
     Active Substance: ALCOHOL
     Indication: Product used for unknown indication
     Dates: start: 20250129, end: 20250206

REACTIONS (8)
  - Hepatomegaly [Recovering/Resolving]
  - Drug abuse [Not Recovered/Not Resolved]
  - Cholestasis [Recovering/Resolving]
  - Hepatic cytolysis [Recovering/Resolving]
  - Cholangitis [Recovering/Resolving]
  - Abdominal pain [Recovering/Resolving]
  - Constipation [Recovered/Resolved]
  - Diarrhoea [Recovered/Resolved]

NARRATIVE: CASE EVENT DATE: 20250131
